FAERS Safety Report 8851710 (Version 1)
Quarter: 2012Q4

REPORT INFORMATION
  Report Type: 
  Country: US (occurrence: US)
  Receive Date: 20121022
  Receipt Date: 20121022
  Transmission Date: 20130627
  Serious: No
  Sender: FDA-Public Use
  Company Number: US-PFIZER INC-2012259289

PATIENT
  Age: 76 Year
  Sex: Male
  Weight: 65.76 kg

DRUGS (7)
  1. TOVIAZ [Suspect]
     Indication: BLADDER DISORDER
     Dosage: 4 mg,  daily
     Dates: start: 20120919
  2. TOVIAZ [Suspect]
     Dosage: 8 mg,  daily
     Dates: start: 20121012, end: 20121016
  3. ACETYLSALICYLIC ACID [Concomitant]
     Indication: ROUTINE HEALTH MAINTENANCE
     Dosage: 81 mg, daily
  4. MULTIVITAMINS [Concomitant]
     Dosage: UNK, daily
  5. PRISTIQ [Concomitant]
     Indication: BIPOLAR I DISORDER
     Dosage: 100 mg, daily
  6. SEROQUEL [Concomitant]
     Indication: BIPOLAR I DISORDER
     Dosage: 300 mg, daily
  7. SEROQUEL [Concomitant]
     Indication: SLEEP DISORDER
     Dosage: 100 mg, daily

REACTIONS (2)
  - Abnormal dreams [Recovered/Resolved]
  - Insomnia [Not Recovered/Not Resolved]
